FAERS Safety Report 6735364-7 (Version None)
Quarter: 2010Q2

REPORT INFORMATION
  Report Type: 
  Country: None (occurrence: None)
  Receive Date: 20100520
  Receipt Date: 20100520
  Transmission Date: 20101027
  Serious: No
  Sender: FDA-Public Use
  Company Number: None

PATIENT
  Age: 37 Year
  Sex: Male
  Weight: 95.2554 kg

DRUGS (1)
  1. E-CIGARETTE MEDIUM WWW.ESMOKE.NET [Suspect]

REACTIONS (1)
  - DEVICE MALFUNCTION [None]
